FAERS Safety Report 10411273 (Version 2)
Quarter: 2014Q3

REPORT INFORMATION
  Report Type: Spontaneous
  Country: US (occurrence: US)
  Receive Date: 20140826
  Receipt Date: 20140826
  Transmission Date: 20150326
  Serious: No
  Sender: FDA-Public Use
  Company Number: US-ASTRAZENECA-2014SE10363

PATIENT
  Age: 59 Year
  Sex: Male
  Weight: 108.9 kg

DRUGS (2)
  1. COUMADIN [Concomitant]
     Active Substance: WARFARIN SODIUM
     Indication: COAGULOPATHY
     Route: 065
     Dates: start: 2011
  2. SYMBICORT [Suspect]
     Active Substance: BUDESONIDE\FORMOTEROL FUMARATE DIHYDRATE
     Indication: BRONCHITIS CHRONIC
     Dosage: 160/4.5 MCG, 2 PUFFS, BID
     Route: 055
     Dates: start: 201312

REACTIONS (7)
  - Nasopharyngitis [Recovered/Resolved]
  - Dysphonia [Not Recovered/Not Resolved]
  - Off label use [Unknown]
  - Psychomotor hyperactivity [Unknown]
  - Dyspnoea [Not Recovered/Not Resolved]
  - Intentional product misuse [Unknown]
  - Incorrect product storage [Unknown]

NARRATIVE: CASE EVENT DATE: 2014
